FAERS Safety Report 4436590-2 (Version None)
Quarter: 2004Q3

REPORT INFORMATION
  Report Type: 
  Country: None (occurrence: None)
  Receive Date: 20040830
  Receipt Date: 20040709
  Transmission Date: 20050211
  Serious: No
  Sender: FDA-Public Use
  Company Number: US-BRISTOL-MYERS SQUIBB COMPANY-12637583

PATIENT
  Age: 16 Year
  Sex: Male
  Weight: 82 kg

DRUGS (5)
  1. ABILIFY [Suspect]
     Indication: BIPOLAR DISORDER
     Dosage: INCREASED TO 15 MG/DAY; DECREASED TO 10 MG/DAY
     Route: 048
  2. MELATONIN [Concomitant]
     Dosage: 3-6 MG/DAY
  3. ADVAIR DISKUS 100/50 [Concomitant]
     Dosage: 2/50-50
  4. SINGULAIR [Concomitant]
  5. ALBUTEROL [Concomitant]
     Dosage: 2 PUFFS/DAY

REACTIONS (1)
  - SPONTANEOUS PENILE ERECTION [None]
